FAERS Safety Report 9242190 (Version 1)
Quarter: 2013Q2

REPORT INFORMATION
  Report Type: Report from Study
  Country: AU (occurrence: AU)
  Receive Date: 20130419
  Receipt Date: 20130419
  Transmission Date: 20140414
  Serious: Yes (Hospitalization)
  Sender: FDA-Public Use
  Company Number: AU-BAYER-2013-048370

PATIENT
  Age: 68 Year
  Sex: Male

DRUGS (1)
  1. MOXIFLOXACIN [Suspect]

REACTIONS (1)
  - Cholestatic liver injury [Recovered/Resolved]
